FAERS Safety Report 4721645-5 (Version None)
Quarter: 2005Q3

REPORT INFORMATION
  Report Type: 
  Country: None (occurrence: None)
  Receive Date: 20050721
  Receipt Date: 20050131
  Transmission Date: 20060218
  Serious: Yes (Other)
  Sender: FDA-Public Use
  Company Number: US-BRISTOL-MYERS SQUIBB COMPANY-12844619

PATIENT
  Age: 60 Year
  Sex: Male
  Weight: 77 kg

DRUGS (4)
  1. COUMADIN [Suspect]
     Indication: THROMBOSIS
     Dates: start: 20050101, end: 20050101
  2. ATENOLOL [Suspect]
     Dates: start: 20050101
  3. FLOMAX [Concomitant]
     Dates: start: 20050101, end: 20050101
  4. PREVACID [Concomitant]
     Dates: start: 20050101, end: 20050101

REACTIONS (1)
  - HYPERSENSITIVITY [None]
